FAERS Safety Report 8587578 (Version 5)
Quarter: 2014Q2

REPORT INFORMATION
  Report Type: Spontaneous
  Country: US (occurrence: US)
  Receive Date: 20120531
  Receipt Date: 20140423
  Transmission Date: 20141212
  Serious: Yes (Hospitalization, Other)
  Sender: FDA-Public Use
  Company Number: US-ASTRAZENECA-2012SE33532

PATIENT
  Age: 831 Month
  Sex: Male

DRUGS (26)
  1. NEXIUM [Suspect]
     Indication: GASTROOESOPHAGEAL REFLUX DISEASE
     Route: 048
     Dates: start: 2001, end: 201305
  2. NEXIUM [Suspect]
     Indication: GASTROOESOPHAGEAL REFLUX DISEASE
     Route: 048
     Dates: start: 2007, end: 2011
  3. NEXIUM [Suspect]
     Indication: GASTROOESOPHAGEAL REFLUX DISEASE
     Route: 048
     Dates: start: 20071023
  4. NEXIUM [Suspect]
     Indication: GASTROOESOPHAGEAL REFLUX DISEASE
     Route: 048
     Dates: start: 20100721
  5. NEXIUM [Suspect]
     Indication: GASTROOESOPHAGEAL REFLUX DISEASE
     Route: 048
  6. LOVAZA [Concomitant]
     Indication: BLOOD TRIGLYCERIDES INCREASED
     Dates: start: 201007
  7. ALENDRONATE SODIUM/FOSAMAX [Concomitant]
     Dates: start: 201007
  8. LEVOXYL [Concomitant]
     Indication: HYPOTHYROIDISM
     Dates: start: 201007
  9. DEXAMETHASONE [Concomitant]
     Dates: start: 201007
  10. BUPROPION HCL SR [Concomitant]
  11. NUVIGIL [Concomitant]
  12. DIAZEPAM [Concomitant]
  13. FUROSEMIDE [Concomitant]
     Dates: start: 201007
  14. PREDNISONE [Concomitant]
     Route: 048
     Dates: start: 20080314
  15. PREDNISONE [Concomitant]
     Dates: start: 201007
  16. IBUPROFEN [Concomitant]
     Dates: start: 201007
  17. TESTIM [Concomitant]
     Indication: BLOOD TESTOSTERONE DECREASED
     Dates: start: 201007
  18. VYTORIN [Concomitant]
     Indication: BLOOD CHOLESTEROL INCREASED
     Dates: start: 201007
  19. POTASSIUM [Concomitant]
     Dates: start: 201007
  20. METAMUCIL [Concomitant]
     Indication: CONSTIPATION
     Dates: start: 201007
  21. TORSEMIDE/DEMADEX [Concomitant]
     Indication: OEDEMA
     Route: 048
     Dates: start: 20080314
  22. LEXAPRO AND BUPROPIRON [Concomitant]
     Indication: DEPRESSION
  23. PRIMIDONE [Concomitant]
     Indication: TREMOR
  24. LYRICA [Concomitant]
     Indication: SLEEP DISORDER
  25. ASPIRIN [Concomitant]
     Indication: CARDIAC DISORDER
  26. FORTEO [Concomitant]
     Dosage: 2.4 ML

REACTIONS (24)
  - Spinal fracture [Unknown]
  - Spinal compression fracture [Unknown]
  - Back pain [Unknown]
  - Nerve root compression [Unknown]
  - Staphylococcal infection [Unknown]
  - Blood potassium decreased [Unknown]
  - Pulmonary hypertension [Unknown]
  - Amyloidosis [Unknown]
  - Cellulitis [Unknown]
  - Cardiac failure congestive [Unknown]
  - Cardiac arrest [Unknown]
  - Dehydration [Unknown]
  - Hypotension [Unknown]
  - Pneumonia [Unknown]
  - Cardiac disorder [Unknown]
  - Osteoporosis [Unknown]
  - Ear haemorrhage [Unknown]
  - Hypothyroidism [Unknown]
  - Ear infection [Unknown]
  - Lymphadenopathy [Unknown]
  - Mastoiditis [Unknown]
  - Carpal tunnel syndrome [Unknown]
  - Osteopenia [Unknown]
  - Depression [Unknown]
